FAERS Safety Report 9055177 (Version 1)
Quarter: 2013Q1

REPORT INFORMATION
  Report Type: Spontaneous
  Country: US (occurrence: US)
  Receive Date: 20130206
  Receipt Date: 20130206
  Transmission Date: 20140127
  Serious: Yes (Other)
  Sender: FDA-Public Use
  Company Number: US-JNJFOC-20130116655

PATIENT
  Sex: Female

DRUGS (2)
  1. NEOSPORIN [Suspect]
     Indication: LACERATION
     Dosage: SPRAYED THE PRODUCT AS DIRECTIONS INDICATED
     Route: 061
  2. NEOSPORIN [Suspect]
     Indication: THERMAL BURN
     Dosage: SPRAYED THE PRODUCT AS DIRECTIONS INDICATED
     Route: 061

REACTIONS (3)
  - Eye swelling [Unknown]
  - Rash pruritic [Unknown]
  - Rash generalised [None]
